FAERS Safety Report 4657807-5 (Version None)
Quarter: 2005Q2

REPORT INFORMATION
  Report Type: 
  Country: None (occurrence: None)
  Receive Date: 20050426
  Receipt Date: 20050323
  Transmission Date: 20051028
  Serious: Yes (Hospitalization)
  Sender: FDA-Public Use
  Company Number: ZICO001124

PATIENT
  Age: 50 Year
  Sex: Female
  Weight: 92.9874 kg

DRUGS (12)
  1. PRIALT [Suspect]
     Indication: PAIN
     Dosage: 0.113 MCG/HR INTRATHECAL
     Route: 037
     Dates: start: 20040831, end: 20041007
  2. LEVOXYL [Concomitant]
  3. LISINOPRIL [Concomitant]
  4. HUMALOG [Concomitant]
  5. LANTUS (INSULIN GLARGINE INJECTION) [Concomitant]
  6. MAGNESIUM ^JENAPHARM^ (MAGNESIUM CARBONATE) [Concomitant]
  7. ELAVIL [Concomitant]
  8. MS CONTIN [Concomitant]
  9. ASPIRIN [Concomitant]
  10. CALCIUM (CALCIUM) [Concomitant]
  11. MULTIVITAMINS (ERGOCALCIFEROL) [Concomitant]
  12. DOCUSATE SODIUM (DOCUSATE) [Concomitant]

REACTIONS (2)
  - NAUSEA [None]
  - VOMITING [None]
